FAERS Safety Report 6275353-2 (Version None)
Quarter: 2009Q3

REPORT INFORMATION
  Report Type: 
  Country: None (occurrence: None)
  Receive Date: 20090721
  Receipt Date: 20090713
  Transmission Date: 20100115
  Serious: Yes (Other)
  Sender: FDA-Public Use
  Company Number: US-AVENTIS-200916136US

PATIENT
  Sex: Female

DRUGS (4)
  1. LOVENOX [Suspect]
     Indication: PREGNANCY
     Dates: start: 20090620, end: 20090601
  2. LOVENOX [Suspect]
     Indication: FACTOR V LEIDEN MUTATION
     Dates: start: 20090620, end: 20090601
  3. ARIXTRA [Concomitant]
     Indication: PREGNANCY
     Dosage: DOSE: UNK
  4. ARIXTRA [Concomitant]
     Indication: FACTOR V LEIDEN MUTATION
     Dosage: DOSE: UNK

REACTIONS (2)
  - ABORTION SPONTANEOUS [None]
  - DRUG EXPOSURE DURING PREGNANCY [None]
